FAERS Safety Report 5352665-8 (Version None)
Quarter: 2007Q2

REPORT INFORMATION
  Report Type: 
  Country: None (occurrence: None)
  Receive Date: 20070518
  Receipt Date: 20070308
  Transmission Date: 20071010
  Serious: No
  Sender: FDA-Public Use
  Company Number: TPA2007A00545

PATIENT
  Age: 83 Year
  Sex: Female
  Weight: 78.9259 kg

DRUGS (3)
  1. ROZEREM [Suspect]
     Indication: MIDDLE INSOMNIA
     Dosage: 16 MG, HS, PER ORAL
     Route: 048
     Dates: start: 20070301
  2. CRESTOR [Concomitant]
  3. ZETIA [Concomitant]

REACTIONS (2)
  - DRUG INEFFECTIVE [None]
  - PRESCRIBED OVERDOSE [None]
